FAERS Safety Report 23585001 (Version 1)
Quarter: 2024Q1

REPORT INFORMATION
  Report Type: Spontaneous
  Country: IT (occurrence: IT)
  Receive Date: 20240301
  Receipt Date: 20240301
  Transmission Date: 20240410
  Serious: Yes (Hospitalization)
  Sender: FDA-Public Use
  Company Number: None

PATIENT
  Age: 90 Year
  Sex: Female
  Weight: 60 kg

DRUGS (3)
  1. QUETIAPINE [Suspect]
     Active Substance: QUETIAPINE
     Indication: Product used for unknown indication
     Dosage: TIME INTERVAL: TOTAL: SINGLE ADMINISTRATION OF QUETIAPINE 1 CP OF 300 MG
     Route: 048
     Dates: start: 20221120, end: 20221120
  2. VALPROATE SODIUM [Suspect]
     Active Substance: VALPROATE SODIUM
     Indication: Product used for unknown indication
     Dosage: TIME INTERVAL: TOTAL: SINGLE ADMINISTRATION 1 CP DEPAKIN 500 MG FOR THERAPEUTIC ERROR
     Route: 048
     Dates: start: 20221120, end: 20221120
  3. CHLORPROMAZINE [Suspect]
     Active Substance: CHLORPROMAZINE
     Indication: Product used for unknown indication
     Dosage: TIME INTERVAL: TOTAL: MOMO ADMINISTRATION OF 1 CP 25 MG THERAPEUTIC ERROR
     Route: 048
     Dates: start: 20221120, end: 20221120

REACTIONS (2)
  - Medication error [Recovering/Resolving]
  - Sopor [Recovering/Resolving]

NARRATIVE: CASE EVENT DATE: 20221120
